FAERS Safety Report 7311519-8 (Version None)
Quarter: 2011Q1

REPORT INFORMATION
  Report Type: 
  Country: None (occurrence: None)
  Receive Date: 20110224
  Receipt Date: 20110218
  Transmission Date: 20110831
  Serious: Yes (Other)
  Sender: FDA-Public Use
  Company Number: PHHY2010BR47924

PATIENT
  Age: 80 Year
  Sex: Female
  Weight: 55 kg

DRUGS (6)
  1. CODEINE [Concomitant]
     Indication: BONE PAIN
     Dosage: 2 OR 3 TABLETS DAILY
     Dates: start: 20100201
  2. VERAPAMIL HYDROCHLORIDE [Concomitant]
     Indication: CARDIAC DISORDER
     Dosage: 1 TABLET DAILY, STARTED IT 2 OR 3 YEARS AGO
     Route: 048
  3. SERTRALINE HYDROCHLORIDE [Concomitant]
     Indication: DEPRESSION
     Dosage: UNK
     Dates: end: 20100601
  4. LISADOR [Concomitant]
     Indication: BONE PAIN
     Dosage: 1 OR 2 TABLETS
  5. FORASEQ [Suspect]
     Indication: ASTHMA
     Dosage: 1 DF, BID
  6. LOSARTAN POTASSIUM AND HYDROCHLOROTHIAZIDE [Concomitant]
     Indication: HYPERTENSION
     Dosage: 1 OR 2 TABLETS DAILY, STARTED IT 3 YEARS AGO
     Route: 048

REACTIONS (2)
  - HEARING IMPAIRED [None]
  - CONCOMITANT DISEASE PROGRESSION [None]
